FAERS Safety Report 21974577 (Version 2)
Quarter: 2023Q1

REPORT INFORMATION
  Report Type: Spontaneous
  Country: US (occurrence: US)
  Receive Date: 20230209
  Receipt Date: 20230224
  Transmission Date: 20230417
  Serious: Yes (Hospitalization)
  Sender: FDA-Public Use
  Company Number: US-TEVA-2023-US-2852600

PATIENT
  Age: 10 Year
  Sex: Male

DRUGS (6)
  1. VINCRISTINE [Suspect]
     Active Substance: VINCRISTINE
     Indication: T-cell type acute leukaemia
     Dosage: RECEIVED ON DAY 1 TO 5
     Route: 065
  2. METHOTREXATE [Suspect]
     Active Substance: METHOTREXATE
     Indication: T-cell type acute leukaemia
     Dosage: INITIAL DOSE UNKNWON
     Route: 048
  3. METHOTREXATE [Suspect]
     Active Substance: METHOTREXATE
     Dosage: RECEIVED 125% OF THE ORIGINAL DOSE, WHICH HAD BEEN RECENTLY INCREASED IN CYCLE 5.
     Route: 048
  4. MERCAPTOPURINE [Suspect]
     Active Substance: MERCAPTOPURINE
     Indication: T-cell type acute leukaemia
     Dosage: INITIAL DOSE UNKNWON
     Route: 065
  5. MERCAPTOPURINE [Suspect]
     Active Substance: MERCAPTOPURINE
     Dosage: RECEIVED 120% OF THE ORIGINAL DOSE, WHICH HAD BEEN RECENTLY INCREASED IN CYCLE 5.
     Route: 065
  6. DEXAMETHASONE [Concomitant]
     Active Substance: DEXAMETHASONE
     Indication: T-cell type acute leukaemia
     Dosage: 6 MG/M2 DAILY; RECEIVED ON DAY 1 TO 5
     Route: 048

REACTIONS (2)
  - Venoocclusive liver disease [Recovered/Resolved]
  - Portal hypertension [Recovering/Resolving]
